FAERS Safety Report 10149483 (Version 1)
Quarter: 2014Q2

REPORT INFORMATION
  Report Type: Spontaneous
  Country: US (occurrence: None)
  Receive Date: 20140430
  Receipt Date: 20140430
  Transmission Date: 20141212
  Serious: Yes (Other)
  Sender: FDA-Public Use
  Company Number: ADE14-013

PATIENT
  Age: 79 Year
  Sex: Male
  Weight: 88 kg

DRUGS (14)
  1. ROCURONIUM BROMIDE [Suspect]
     Indication: INGUINAL HERNIA REPAIR
     Dosage: 80 MG TOTAL DOSE
     Route: 042
     Dates: start: 20140418, end: 20140418
  2. SEVOFLURNE [Concomitant]
  3. DESFLURANE [Concomitant]
  4. FENTANYL [Concomitant]
  5. PHENYLEPHRINE [Concomitant]
  6. CEFAZOLIN [Concomitant]
  7. LIDOCAINE [Concomitant]
  8. PROPOFOL [Concomitant]
  9. ONDANSETRON [Concomitant]
  10. ACETAMINOPHEN [Concomitant]
  11. DEXMEDETOMIDINE [Concomitant]
  12. NEOSTIGMINE [Concomitant]
  13. GLYCOPYRROLATE [Concomitant]
  14. LACTATED RINGERS [Concomitant]

REACTIONS (1)
  - Drug ineffective [None]
